FAERS Safety Report 5312765-5 (Version None)
Quarter: 2007Q2

REPORT INFORMATION
  Report Type: 
  Country: None (occurrence: None)
  Receive Date: 20070430
  Receipt Date: 20070425
  Transmission Date: 20071010
  Serious: Yes (Other)
  Sender: FDA-Public Use
  Company Number: ES-BOEHRINGER INGELHEIM PHARMACEUTICALS, INC.-2007-DE-02357GD

PATIENT
  Age: 62 Year
  Sex: Female

DRUGS (2)
  1. PRAMIPEXOLE DIHYDROCHLORIDE [Suspect]
     Indication: PARKINSON'S DISEASE
     Route: 048
  2. PRAMIPEXOLE DIHYDROCHLORIDE [Suspect]
     Route: 048

REACTIONS (9)
  - CHEST PAIN [None]
  - DIZZINESS [None]
  - FEAR OF DEATH [None]
  - HYPERHIDROSIS [None]
  - NAUSEA [None]
  - PALPITATIONS [None]
  - PANIC ATTACK [None]
  - TREMOR [None]
  - VISION BLURRED [None]
